FAERS Safety Report 9981464 (Version 1)
Quarter: 2014Q1

REPORT INFORMATION
  Report Type: Spontaneous
  Country: AT (occurrence: AT)
  Receive Date: 20140307
  Receipt Date: 20140307
  Transmission Date: 20141002
  Serious: Yes (Other)
  Sender: FDA-Public Use
  Company Number: AT-JNJFOC-20140215316

PATIENT
  Age: 52 Year
  Sex: Male
  Weight: 85 kg

DRUGS (9)
  1. RISPERDAL [Suspect]
     Indication: PRODUCT USED FOR UNKNOWN INDICATION
  2. RISPERDAL [Suspect]
     Indication: PRODUCT USED FOR UNKNOWN INDICATION
  3. XEPLION [Suspect]
     Indication: PRODUCT USED FOR UNKNOWN INDICATION
     Route: 030
     Dates: end: 20140130
  4. MIRTAZAPINE [Interacting]
     Indication: PRODUCT USED FOR UNKNOWN INDICATION
     Route: 065
     Dates: start: 20131209, end: 20131209
  5. AKINETON [Interacting]
     Indication: PRODUCT USED FOR UNKNOWN INDICATION
     Route: 065
  6. SOLIAN [Interacting]
     Indication: PRODUCT USED FOR UNKNOWN INDICATION
     Route: 065
     Dates: start: 20131209
  7. PANTOLOC [Interacting]
     Indication: PRODUCT USED FOR UNKNOWN INDICATION
     Route: 065
     Dates: start: 20131209
  8. TEMESTA [Concomitant]
     Indication: PRODUCT USED FOR UNKNOWN INDICATION
     Route: 065
     Dates: start: 20131208
  9. SULTANOL [Concomitant]
     Indication: PRODUCT USED FOR UNKNOWN INDICATION
     Route: 065

REACTIONS (2)
  - Dry mouth [Recovered/Resolved]
  - Drug interaction [Unknown]
